FAERS Safety Report 7678287 (Version 2)
Quarter: 2012Q4

REPORT INFORMATION
  Report Type: 
  Country: BR (occurrence: BR)
  Receive Date: 20101122
  Receipt Date: 20121219
  Transmission Date: 20130627
  Serious: Yes (Hospitalization, Other)
  Sender: FDA-Public Use
  Company Number: PHHY2010BR76284

PATIENT
  Sex: Male

DRUGS (8)
  1. GALVUS MET [Suspect]
     Indication: DIABETES MELLITUS
     Dosage: 1 DF, (850 mg metf/ 50 mg vilda)
  2. GALVUS MET [Suspect]
     Dosage: 2 DF, (850 mg metf/ 50 mg vilda) daily
  3. DIOVAN AMLO FIX [Suspect]
     Indication: BLOOD PRESSURE
     Dosage: 1 DF, (320 mg vals/ 10 mg amlo)
  4. NATRILIX [Concomitant]
     Dosage: 1.5 mg, 1 tablet a day
  5. CRESTOR [Concomitant]
     Indication: BLOOD CHOLESTEROL
     Dosage: 1 DF,
  6. SERTRALINE HYDROCHLORIDE [Concomitant]
     Indication: DRUG ABUSE
     Dosage: 50 mg, 1 tablet a day
  7. CLOPIDOGREL [Concomitant]
     Indication: BLOOD DISORDER
     Dosage: 1 DF,
  8. GLIMEPIRIDE [Concomitant]
     Indication: DIABETES MELLITUS
     Dosage: 4 mg, 1 tablet a day

REACTIONS (2)
  - Cerebrovascular accident [Recovering/Resolving]
  - Oedema peripheral [Not Recovered/Not Resolved]
